FAERS Safety Report 5664671-4 (Version None)
Quarter: 2008Q1

REPORT INFORMATION
  Report Type: 
  Country: None (occurrence: None)
  Receive Date: 20080314
  Receipt Date: 20080304
  Transmission Date: 20080703
  Serious: Yes (Other)
  Sender: FDA-Public Use
  Company Number: FR-ROCHE-512157

PATIENT
  Sex: Male
  Weight: 3.4 kg

DRUGS (2)
  1. ROACCUTANE [Suspect]
     Indication: DRUG USE FOR UNKNOWN INDICATION
     Dates: end: 20070606
  2. DIANE 35 [Concomitant]
     Indication: CONTRACEPTION
     Dates: end: 20070515

REACTIONS (2)
  - APGAR SCORE ABNORMAL [None]
  - NORMAL NEWBORN [None]
